FAERS Safety Report 7646440-9 (Version None)
Quarter: 2011Q3

REPORT INFORMATION
  Report Type: 
  Country: None (occurrence: None)
  Receive Date: 20110801
  Receipt Date: 20110721
  Transmission Date: 20111222
  Serious: Yes (Other)
  Sender: FDA-Public Use
  Company Number: DE-JNJFOC-20110708908

PATIENT
  Age: 66 Year
  Sex: Female

DRUGS (3)
  1. CIPROFLOXACIN [Suspect]
     Indication: ORGANISING PNEUMONIA
     Route: 065
     Dates: start: 20110701, end: 20110701
  2. CORTISONE ACETATE [Concomitant]
     Route: 065
  3. LEVOFLOXACIN [Suspect]
     Indication: ORGANISING PNEUMONIA
     Route: 048
     Dates: start: 20110701, end: 20110713

REACTIONS (4)
  - MOOD SWINGS [None]
  - NERVOUS SYSTEM DISORDER [None]
  - SUICIDAL IDEATION [None]
  - INSOMNIA [None]
